FAERS Safety Report 8902864 (Version 1)
Quarter: 2012Q4

REPORT INFORMATION
  Report Type: 
  Country: GB (occurrence: GB)
  Receive Date: 20121113
  Receipt Date: 20121113
  Transmission Date: 20130627
  Serious: Yes (Other)
  Sender: FDA-Public Use
  Company Number: GB-TEVA-356179ISR

PATIENT
  Age: 59 Year
  Sex: Female

DRUGS (1)
  1. TAMOXIFEN [Suspect]
     Dates: start: 20100709

REACTIONS (9)
  - Yellow skin [Recovering/Resolving]
  - Oedema peripheral [Unknown]
  - Skin discolouration [Unknown]
  - Rash [Recovered/Resolved with Sequelae]
  - Vaginal discharge [Not Recovered/Not Resolved]
  - Hair texture abnormal [Unknown]
  - Dermatitis bullous [Unknown]
  - Pigmentation buccal [Not Recovered/Not Resolved]
  - Corneal disorder [Unknown]
